FAERS Safety Report 14090832 (Version 1)
Quarter: 2017Q4

REPORT INFORMATION
  Report Type: Spontaneous
  Country: FR (occurrence: FR)
  Receive Date: 20171015
  Receipt Date: 20171015
  Transmission Date: 20180321
  Serious: Yes (Life-Threatening, Hospitalization, Other)
  Sender: FDA-Public Use
  Company Number: FR-BAXTER-2017BAX035166

PATIENT
  Age: 65 Year
  Sex: Male

DRUGS (37)
  1. CORTANCYL [Suspect]
     Active Substance: PREDNISONE
     Dosage: DECREASED DOSE
     Route: 048
     Dates: start: 200905
  2. CORTANCYL [Suspect]
     Active Substance: PREDNISONE
     Dosage: DECREASED DOSE
     Route: 048
     Dates: start: 201012
  3. CORTANCYL [Suspect]
     Active Substance: PREDNISONE
     Dosage: DECREASED DOSE
     Route: 048
     Dates: start: 201204
  4. CELLCEPT [Suspect]
     Active Substance: MYCOPHENOLATE MOFETIL\MYCOPHENOLATE MOFETIL HYDROCHLORIDE
     Indication: GRANULOMATOSIS WITH POLYANGIITIS
     Route: 048
     Dates: start: 200703, end: 200703
  5. CELLCEPT [Suspect]
     Active Substance: MYCOPHENOLATE MOFETIL\MYCOPHENOLATE MOFETIL HYDROCHLORIDE
     Dosage: DECREASED DOSE
     Route: 048
     Dates: start: 200811
  6. SPECIAFOLDINE [Concomitant]
     Active Substance: FOLIC ACID
     Indication: PRODUCT USED FOR UNKNOWN INDICATION
     Dosage: LONG TERM TREATMENT
     Route: 065
  7. RITUXIMAB. [Suspect]
     Active Substance: RITUXIMAB
     Indication: DISEASE RECURRENCE
     Dosage: FIRST AND SECOND COURSES
     Route: 042
     Dates: start: 200709, end: 200709
  8. RITUXIMAB. [Suspect]
     Active Substance: RITUXIMAB
     Dosage: NINTH COURSE AS PREVENTIVE TREATMENT
     Route: 042
     Dates: start: 201401, end: 201401
  9. AMLODIPINE [Concomitant]
     Active Substance: AMLODIPINE BESYLATE
     Indication: PRODUCT USED FOR UNKNOWN INDICATION
     Dosage: LONG TERM TREATMENT
     Route: 065
  10. RITUXIMAB. [Suspect]
     Active Substance: RITUXIMAB
     Dosage: SEVENTH AND EIGHTH COURSES AS CURATIVE TREATMENT
     Route: 042
     Dates: start: 201210, end: 201210
  11. TEGELINE [Suspect]
     Active Substance: HUMAN IMMUNOGLOBULIN G
     Indication: PRODUCT USED FOR UNKNOWN INDICATION
     Route: 065
     Dates: start: 2002, end: 2002
  12. CELLCEPT [Suspect]
     Active Substance: MYCOPHENOLATE MOFETIL\MYCOPHENOLATE MOFETIL HYDROCHLORIDE
     Dosage: DECREASED DOSE
     Route: 048
     Dates: start: 200911, end: 201210
  13. RITUXIMAB. [Suspect]
     Active Substance: RITUXIMAB
     Dosage: TENTH COURSE AS PREVENTIVE TREATMENT
     Route: 042
     Dates: start: 201406, end: 201406
  14. RITUXIMAB. [Suspect]
     Active Substance: RITUXIMAB
     Dosage: TWELFTH COURSE
     Route: 042
     Dates: start: 201706, end: 201706
  15. VASTEN [Concomitant]
     Active Substance: PRAVASTATIN SODIUM
     Indication: PRODUCT USED FOR UNKNOWN INDICATION
     Dosage: LONG TERM TREATMENT
     Route: 065
  16. ENDOXAN 1000 MG, POUDRE POUR SOLUTIONINJECTABLE [Suspect]
     Active Substance: CYCLOPHOSPHAMIDE
     Dosage: 6 COURSES
     Route: 042
     Dates: start: 2006, end: 2006
  17. CORTANCYL [Suspect]
     Active Substance: PREDNISONE
     Dosage: INCREASED DOSE
     Route: 048
     Dates: start: 201210
  18. INEXIUM [Concomitant]
     Active Substance: ESOMEPRAZOLE
     Indication: PRODUCT USED FOR UNKNOWN INDICATION
     Dosage: LONG TERM TREATMENT
     Route: 065
  19. CELLCEPT [Suspect]
     Active Substance: MYCOPHENOLATE MOFETIL\MYCOPHENOLATE MOFETIL HYDROCHLORIDE
     Dosage: INCREASED DOSE
     Route: 048
     Dates: start: 200703
  20. CELLCEPT [Suspect]
     Active Substance: MYCOPHENOLATE MOFETIL\MYCOPHENOLATE MOFETIL HYDROCHLORIDE
     Dosage: DECREASED DOSE
     Route: 048
     Dates: start: 200905
  21. RITUXIMAB. [Suspect]
     Active Substance: RITUXIMAB
     Indication: GRANULOMATOSIS WITH POLYANGIITIS
     Dosage: THIRD AND FOURTH COURSES
     Route: 042
     Dates: start: 200710, end: 200710
  22. TEGELINE [Suspect]
     Active Substance: HUMAN IMMUNOGLOBULIN G
     Route: 065
     Dates: start: 2006, end: 2006
  23. BACTRIM [Concomitant]
     Active Substance: SULFAMETHOXAZOLE\TRIMETHOPRIM
     Indication: PRODUCT USED FOR UNKNOWN INDICATION
     Dosage: LONG TERM TREATMENT
     Route: 065
  24. APROVEL [Concomitant]
     Active Substance: IRBESARTAN
     Indication: PRODUCT USED FOR UNKNOWN INDICATION
     Dosage: LONG TERM TREATMENT
     Route: 065
  25. LASILIX [Concomitant]
     Active Substance: FUROSEMIDE
     Indication: PRODUCT USED FOR UNKNOWN INDICATION
     Dosage: LONG TERM TREATMENT
     Route: 065
  26. CORTANCYL [Suspect]
     Active Substance: PREDNISONE
     Indication: GRANULOMATOSIS WITH POLYANGIITIS
     Route: 048
     Dates: start: 2002, end: 2002
  27. CORTANCYL [Suspect]
     Active Substance: PREDNISONE
     Route: 048
     Dates: start: 2006, end: 2006
  28. CORTANCYL [Suspect]
     Active Substance: PREDNISONE
     Route: 048
     Dates: start: 201003
  29. IMUREL [Suspect]
     Active Substance: AZATHIOPRINE SODIUM
     Indication: GRANULOMATOSIS WITH POLYANGIITIS
     Route: 048
     Dates: start: 2002, end: 2002
  30. IMUREL [Suspect]
     Active Substance: AZATHIOPRINE SODIUM
     Route: 048
     Dates: start: 2006, end: 2006
  31. RITUXIMAB. [Suspect]
     Active Substance: RITUXIMAB
     Dosage: ELEVENTH COURSE AS PREVENTIVE TREATMENT
     Route: 042
     Dates: start: 201501, end: 201501
  32. ENDOXAN 1000 MG, POUDRE POUR SOLUTIONINJECTABLE [Suspect]
     Active Substance: CYCLOPHOSPHAMIDE
     Indication: PRODUCT USED FOR UNKNOWN INDICATION
     Dosage: 6 COURSES
     Route: 042
     Dates: start: 2002, end: 2002
  33. CORTANCYL [Suspect]
     Active Substance: PREDNISONE
     Dosage: PROGRESSIVE DECREASE OF DOSE
     Route: 048
     Dates: start: 201004
  34. CELLCEPT [Suspect]
     Active Substance: MYCOPHENOLATE MOFETIL\MYCOPHENOLATE MOFETIL HYDROCHLORIDE
     Dosage: INCREASED DOSE
     Route: 048
     Dates: start: 200710
  35. RITUXIMAB. [Suspect]
     Active Substance: RITUXIMAB
     Dosage: FIFTH COURSE
     Route: 042
     Dates: start: 201003, end: 201003
  36. RITUXIMAB. [Suspect]
     Active Substance: RITUXIMAB
     Dosage: SIXTH COURSE
     Route: 042
     Dates: start: 201004, end: 201004
  37. KARDEGIC [Concomitant]
     Active Substance: ASPIRIN DL-LYSINE
     Indication: PRODUCT USED FOR UNKNOWN INDICATION
     Dosage: LONG TERM TREATMENT
     Route: 065

REACTIONS (7)
  - Disease recurrence [Unknown]
  - Adenocarcinoma [Not Recovered/Not Resolved]
  - Metastases to lymph nodes [Unknown]
  - Disease recurrence [Unknown]
  - Metastases to bone [Unknown]
  - Disease recurrence [Unknown]
  - Second primary malignancy [Not Recovered/Not Resolved]

NARRATIVE: CASE EVENT DATE: 200709
